FAERS Safety Report 6213950-0 (Version None)
Quarter: 2009Q2

REPORT INFORMATION
  Report Type: 
  Country: None (occurrence: None)
  Receive Date: 20090601
  Receipt Date: 20090601
  Transmission Date: 20091009
  Serious: Yes (Other)
  Sender: FDA-Public Use
  Company Number: None

PATIENT
  Age: 24 Year
  Sex: Female
  Weight: 58.9676 kg

DRUGS (1)
  1. PLAN B [Suspect]

REACTIONS (3)
  - AMENORRHOEA [None]
  - BLOOD FOLLICLE STIMULATING HORMONE DECREASED [None]
  - VICTIM OF ABUSE [None]
